FAERS Safety Report 5237076-8 (Version None)
Quarter: 2007Q1

REPORT INFORMATION
  Report Type: 
  Country: None (occurrence: None)
  Receive Date: 20061208
  Receipt Date: 20050303
  Transmission Date: 20070707
  Serious: Yes (Other)
  Sender: FDA-Public Use
  Company Number: 2005UW03495

PATIENT
  Age: 75 Year
  Sex: Male

DRUGS (5)
  1. CRESTOR [Suspect]
     Indication: BLOOD CHOLESTEROL INCREASED
     Dosage: 15 MG DAILY PO
     Route: 048
     Dates: start: 20041201
  2. LIPITOR [Concomitant]
  3. ZETIA [Concomitant]
  4. METOPROLOL SUCCINATE [Concomitant]
  5. LISINOPRIL [Concomitant]

REACTIONS (1)
  - VISION BLURRED [None]
